FAERS Safety Report 15218394 (Version 2)
Quarter: 2018Q4

REPORT INFORMATION
  Report Type: Spontaneous
  Country: EG (occurrence: EG)
  Receive Date: 20180730
  Receipt Date: 20181010
  Transmission Date: 20190204
  Serious: Yes (Death, Other)
  Sender: FDA-Public Use
  Company Number: EG-BRISTOL-MYERS SQUIBB COMPANY-BMS-2018-070943

PATIENT
  Age: 46 Year
  Sex: Male
  Weight: 95 kg

DRUGS (1)
  1. OPDIVO [Suspect]
     Active Substance: NIVOLUMAB
     Indication: METASTATIC MALIGNANT MELANOMA
     Dosage: 240 MG (FIRST DOSE)
     Route: 042
     Dates: start: 20180403, end: 20180617

REACTIONS (1)
  - Death [Fatal]
